FAERS Safety Report 6902824-5 (Version None)
Quarter: 2010Q3

REPORT INFORMATION
  Report Type: 
  Country: None (occurrence: None)
  Receive Date: 20100803
  Receipt Date: 20080625
  Transmission Date: 20110219
  Serious: No
  Sender: FDA-Public Use
  Company Number: US-PFIZER INC-2008031619

PATIENT
  Sex: Female
  Weight: 91.4 kg

DRUGS (7)
  1. LYRICA [Suspect]
     Indication: FIBROMYALGIA
     Dates: start: 20080404
  2. VALSARTAN [Concomitant]
     Indication: HYPERTENSION
  3. LASIX [Concomitant]
  4. ALLEGRA [Concomitant]
  5. ACETYLSALICYLIC ACID SRT [Concomitant]
  6. AMBIEN [Concomitant]
  7. POTASSIUM [Concomitant]

REACTIONS (4)
  - DIZZINESS [None]
  - FEELING ABNORMAL [None]
  - INSOMNIA [None]
  - PALPITATIONS [None]
